FAERS Safety Report 6543107-5 (Version None)
Quarter: 2010Q1

REPORT INFORMATION
  Report Type: 
  Country: None (occurrence: None)
  Receive Date: 20100120
  Receipt Date: 20100111
  Transmission Date: 20100710
  Serious: Yes (Other)
  Sender: FDA-Public Use
  Company Number: PHHY2009AT33063

PATIENT
  Sex: Male
  Weight: 74 kg

DRUGS (6)
  1. VOLTAREN [Suspect]
     Indication: ARTHRALGIA
     Dosage: 50 MG, UNK
     Dates: end: 20030901
  2. THYREX [Concomitant]
     Dosage: 1X1 DAILY
  3. ATORVASTATIN CALCIUM [Concomitant]
     Indication: HYPERLIPIDAEMIA
     Dosage: 10MG 1X1
  4. FLUDEX [Concomitant]
     Indication: HYPERTENSION
     Dosage: UNK
  5. RAMIPRIL [Concomitant]
     Indication: HYPERTENSION
     Dosage: UNK
  6. VERAPABENE [Concomitant]
     Indication: HYPERTENSION
     Dosage: UNK

REACTIONS (3)
  - CONTUSION [None]
  - HAEMORRHAGIC DIATHESIS [None]
  - RED BLOOD CELL SEDIMENTATION RATE INCREASED [None]
